FAERS Safety Report 14588208 (Version 4)
Quarter: 2018Q2

REPORT INFORMATION
  Report Type: Spontaneous
  Country: JP (occurrence: JP)
  Receive Date: 20180301
  Receipt Date: 20180509
  Transmission Date: 20180711
  Serious: Yes (Other)
  Sender: FDA-Public Use
  Company Number: JP-SA-2018SA049181

PATIENT
  Age: 8 Month
  Sex: Male

DRUGS (3)
  1. LEVOCETIRIZINE [Suspect]
     Active Substance: LEVOCETIRIZINE
     Indication: ECZEMA INFANTILE
     Route: 048
     Dates: start: 20180206, end: 20180208
  2. BESOFTEN [Concomitant]
     Active Substance: PENTOSAN POLYSULFATE SODIUM
     Route: 065
     Dates: start: 20180206, end: 20180208
  3. ABOCOAT [Concomitant]
     Route: 065
     Dates: start: 20180206, end: 20180208

REACTIONS (2)
  - Haematochezia [Recovered/Resolved]
  - Diarrhoea [Recovered/Resolved]

NARRATIVE: CASE EVENT DATE: 20180208
